FAERS Safety Report 8179178-2 (Version None)
Quarter: 2012Q1

REPORT INFORMATION
  Report Type: 
  Country: None (occurrence: None)
  Receive Date: 20120302
  Receipt Date: 20120227
  Transmission Date: 20120608
  Serious: No
  Sender: FDA-Public Use
  Company Number: US-PFIZER INC-2012051759

PATIENT
  Sex: Female
  Weight: 71.202 kg

DRUGS (3)
  1. PAROXETINE [Concomitant]
     Dosage: 40 MG, DAILY
  2. POLYSACCHARIDE-IRON COMPLEX [Concomitant]
     Indication: ANAEMIA
     Dosage: 150 MG, DAILY
  3. SUTENT [Suspect]
     Indication: NEOPLASM MALIGNANT
     Dosage: 50 MG, DAILY
     Route: 048
     Dates: start: 20110101, end: 20120201

REACTIONS (2)
  - BLOOD TEST ABNORMAL [None]
  - NAUSEA [None]
